FAERS Safety Report 6047831-2 (Version None)
Quarter: 2009Q1

REPORT INFORMATION
  Report Type: 
  Country: None (occurrence: None)
  Receive Date: 20090123
  Receipt Date: 20090112
  Transmission Date: 20090719
  Serious: Yes (Hospitalization)
  Sender: FDA-Public Use
  Company Number: FR-PFIZER INC-2009155391

PATIENT

DRUGS (4)
  1. SALAZOPYRIN [Suspect]
     Indication: ABDOMINAL PAIN
     Route: 048
     Dates: start: 20080801, end: 20080820
  2. DI-ANTALVIC [Suspect]
     Indication: ABDOMINAL PAIN
     Route: 048
     Dates: start: 20080801, end: 20080820
  3. SPASFON [Suspect]
     Indication: ABDOMINAL PAIN
     Route: 048
     Dates: start: 20080801, end: 20080820
  4. VOLTARENE [Suspect]
     Indication: ARTHRALGIA
     Route: 061
     Dates: end: 20080820

REACTIONS (3)
  - DRUG RASH WITH EOSINOPHILIA AND SYSTEMIC SYMPTOMS [None]
  - HEPATITIS [None]
  - RASH [None]
